FAERS Safety Report 6274736-4 (Version None)
Quarter: 2009Q3

REPORT INFORMATION
  Report Type: 
  Country: None (occurrence: None)
  Receive Date: 20090721
  Receipt Date: 20090710
  Transmission Date: 20100115
  Serious: Yes (Hospitalization)
  Sender: FDA-Public Use
  Company Number: DE-RANBAXY-2009RR-25612

PATIENT
  Age: 74 Year
  Sex: Male

DRUGS (1)
  1. AMOXICILLIN [Suspect]
     Indication: PERIODONTAL OPERATION
     Dosage: UNK MG, UNK
     Route: 048
     Dates: start: 20090301

REACTIONS (7)
  - CIRCULATORY COLLAPSE [None]
  - COLITIS ULCERATIVE [None]
  - DIARRHOEA [None]
  - ENDOCARDITIS [None]
  - GENERAL PHYSICAL CONDITION ABNORMAL [None]
  - HOSPITALISATION [None]
  - PSEUDOMEMBRANOUS COLITIS [None]
